FAERS Safety Report 6992990-8 (Version None)
Quarter: 2010Q3

REPORT INFORMATION
  Report Type: 
  Country: None (occurrence: None)
  Receive Date: 20100917
  Receipt Date: 20100907
  Transmission Date: 20110219
  Serious: Yes (Hospitalization)
  Sender: FDA-Public Use
  Company Number: GB-BRISTOL-MYERS SQUIBB COMPANY-15278575

PATIENT
  Age: 55 Year
  Sex: Female

DRUGS (15)
  1. ABILIFY [Suspect]
     Dates: start: 20030101, end: 20080101
  2. KENALOG [Suspect]
     Dates: start: 20030101, end: 20080101
  3. ATENOLOL [Suspect]
  4. FLUPHENAZINE HCL [Suspect]
     Indication: SCHIZOPHRENIA
     Dosage: FORM:INJ DISCONTINUED ON NOV2009
  5. FLUPHENAZINE HCL [Suspect]
     Indication: BIPOLAR DISORDER
     Dosage: FORM:INJ DISCONTINUED ON NOV2009
  6. RISPERIDONE [Suspect]
     Indication: ANXIETY
     Dates: start: 20030101, end: 20080101
  7. SEROQUEL [Suspect]
     Dates: start: 20030101, end: 20080101
  8. OLANZAPINE [Suspect]
     Dates: start: 20030101, end: 20080101
  9. CARBAMAZEPINE [Concomitant]
     Indication: AFFECTIVE DISORDER
  10. VALPROATE SODIUM [Concomitant]
     Indication: EPILEPSY
  11. CELEBREX [Concomitant]
     Indication: ARTHRITIS
  12. VALIUM [Concomitant]
  13. CITALOPRAM HYDROBROMIDE [Concomitant]
     Dates: start: 20010101
  14. BISOPROLOL FUMARATE [Concomitant]
  15. AMISULPRIDE [Concomitant]

REACTIONS (10)
  - ADVERSE DRUG REACTION [None]
  - ANXIETY [None]
  - BLOOD PRESSURE DECREASED [None]
  - BLOOD PRESSURE INCREASED [None]
  - CHEST PAIN [None]
  - DYSPNOEA [None]
  - NIGHTMARE [None]
  - OEDEMA PERIPHERAL [None]
  - SEDATION [None]
  - THINKING ABNORMAL [None]
